FAERS Safety Report 9769619 (Version 1)
Quarter: 2013Q3

REPORT INFORMATION
  Report Type: Spontaneous
  Country: US (occurrence: None)
  Receive Date: 20130912
  Receipt Date: 20130912
  Transmission Date: 20140515
  Serious: Yes (Hospitalization, Other)
  Sender: FDA-Public Use
  Company Number: 2012SA031935

PATIENT
  Age: 77 Year
  Sex: Female
  Weight: 70 kg

DRUGS (8)
  1. LANTUS SOLOSTAR [Suspect]
     Indication: TYPE 2 DIABETES MELLITUS
     Route: 058
     Dates: start: 200303
  2. SOLOSTAR [Suspect]
     Indication: TYPE 2 DIABETES MELLITUS
     Dates: start: 2007
  3. TOPROL XL [Concomitant]
  4. LISINOPRIL [Concomitant]
  5. GLYBURIDE W/METFORMIN [Concomitant]
  6. METFORMIN [Concomitant]
  7. CORTICOSTEROID NOS [Concomitant]
  8. GLIPIZIDE [Concomitant]

REACTIONS (6)
  - Atrial fibrillation [None]
  - Pain in extremity [None]
  - Hypoglycaemic coma [None]
  - Injection site pain [None]
  - Injection site haemorrhage [None]
  - Device difficult to use [None]
